FAERS Safety Report 20849857 (Version 13)
Quarter: 2023Q4

REPORT INFORMATION
  Report Type: Spontaneous
  Country: US (occurrence: US)
  Receive Date: 20220519
  Receipt Date: 20231214
  Transmission Date: 20240110
  Serious: Yes (Hospitalization, Other)
  Sender: FDA-Public Use
  Company Number: US-GLAXOSMITHKLINE-US2022AMR078171

PATIENT

DRUGS (28)
  1. ZEJULA [Suspect]
     Active Substance: NIRAPARIB
     Indication: Ovarian cancer
     Dosage: 200 MG,(EVERY OTHER DAY ALTERNATING WITH 1 CAPSULE (100 MG) EVERY OTHER DAY)
     Route: 048
     Dates: start: 202111
  2. ZEJULA [Suspect]
     Active Substance: NIRAPARIB
     Indication: Malignant peritoneal neoplasm
     Dosage: 200 MG, QD
     Route: 048
     Dates: start: 20211121
  3. ZEJULA [Suspect]
     Active Substance: NIRAPARIB
     Dosage: UNK,(100MG/200MG EVERY OTHER DAY)
     Route: 048
     Dates: start: 20211123
  4. ZEJULA [Suspect]
     Active Substance: NIRAPARIB
     Dosage: UNK,(100 MG CAPSULE BY MOUTH EVERY OTHER DAY ALTERNATING WITH 200 MG CAPSULES)
     Dates: end: 20220826
  5. ZEJULA [Suspect]
     Active Substance: NIRAPARIB
     Dosage: (100 MG EVERY OTHER DAY ALTERNATING WITH 200 MG)
     Route: 048
     Dates: start: 20220903
  6. ZEJULA [Suspect]
     Active Substance: NIRAPARIB
     Dosage: UNK UNK, (100 MG CAPSULE BY MOUTH EVERY OTHER DAY ALTERNATING WITH 200 MG CAPSULES ON OPPOSITE DAYS)
     Dates: start: 20221123
  7. ZEJULA [Suspect]
     Active Substance: NIRAPARIB
     Dosage: UNK UNK, (2 CAPSULES (200 MG) EVERY OTHER DAY ALTERNATING WITH 1 CAPSULE (100 MG) EVERY OTHER DAY)
     Route: 048
  8. ZEJULA [Suspect]
     Active Substance: NIRAPARIB
     Dosage: UNK UNK, (2 CAPSULES (200 MG) EVERY OTHER DAY ALTERNATING WITH 1 CAPSULE (100 MG) EVERY OTHER DAY)
     Route: 048
  9. ZEJULA [Suspect]
     Active Substance: NIRAPARIB
     Dosage: 200 MG, QOD
     Route: 048
  10. ZEJULA [Suspect]
     Active Substance: NIRAPARIB
     Indication: Malignant peritoneal neoplasm
     Dosage: 100 MG EVERY OTHER DAY, ALTERNATING WITH TAKING 200 MG ON THE OTHER DAYS
  11. ZEJULA [Suspect]
     Active Substance: NIRAPARIB
     Dosage: UNK, (100MG/200MG ALTERNATING DAILY)
     Route: 048
  12. FOSAMAX [Concomitant]
     Active Substance: ALENDRONATE SODIUM
     Indication: Product used for unknown indication
     Dosage: 70 MG
  13. CALCIUM [Concomitant]
     Active Substance: CALCIUM
     Indication: Product used for unknown indication
     Dosage: UNK
  14. MAGNESIUM [Concomitant]
     Active Substance: MAGNESIUM
     Indication: Product used for unknown indication
     Dosage: 100 MG
  15. GABAPENTIN [Concomitant]
     Active Substance: GABAPENTIN
     Indication: Product used for unknown indication
     Dosage: 100 MG
  16. IRON [Concomitant]
     Active Substance: IRON
     Indication: Product used for unknown indication
     Dosage: UNK
  17. DONEPEZIL [Concomitant]
     Active Substance: DONEPEZIL
     Indication: Product used for unknown indication
     Dosage: UNK
  18. XARELTO [Concomitant]
     Active Substance: RIVAROXABAN
     Indication: Product used for unknown indication
     Dosage: 20 MG
  19. VITAMIN B12 [Concomitant]
     Active Substance: CYANOCOBALAMIN
     Indication: Product used for unknown indication
     Dosage: UNK
  20. VITAMIN D3 [Concomitant]
     Active Substance: CHOLECALCIFEROL
     Indication: Product used for unknown indication
     Dosage: UNK
  21. COMPAZINE [Concomitant]
     Active Substance: PROCHLORPERAZINE MALEATE
     Indication: Product used for unknown indication
     Dosage: 10 MG
  22. ARICEPT [Concomitant]
     Active Substance: DONEPEZIL HYDROCHLORIDE
     Indication: Product used for unknown indication
     Dosage: 10 MG
  23. CALCIUM PLUS D3 [Concomitant]
     Indication: Product used for unknown indication
     Dosage: UNK (600 MG/ 12.5)
  24. ACETAMINOPHEN [Concomitant]
     Active Substance: ACETAMINOPHEN
     Indication: Product used for unknown indication
     Dosage: 325 MG
  25. TOPROL XL [Concomitant]
     Active Substance: METOPROLOL SUCCINATE
     Indication: Product used for unknown indication
     Dosage: 25 MG ER 24H
  26. MEMANTINE HYDROCHLORIDE [Concomitant]
     Active Substance: MEMANTINE HYDROCHLORIDE
     Indication: Product used for unknown indication
     Dosage: 10 MG
  27. MEMANTINE HYDROCHLORIDE [Concomitant]
     Active Substance: MEMANTINE HYDROCHLORIDE
     Dosage: 5 MG-10 MG TAB DS PK
  28. MEMANTINE [Concomitant]
     Active Substance: MEMANTINE
     Indication: Dementia
     Dosage: UNK

REACTIONS (24)
  - Cough [Recovered/Resolved]
  - Pneumonia [Recovered/Resolved]
  - Rectal haemorrhage [Not Recovered/Not Resolved]
  - Hallucination [Unknown]
  - Nausea [Not Recovered/Not Resolved]
  - Constipation [Not Recovered/Not Resolved]
  - Rhinorrhoea [Not Recovered/Not Resolved]
  - Pyrexia [Not Recovered/Not Resolved]
  - Decreased appetite [Unknown]
  - Viral disease carrier [Unknown]
  - Dysphagia [Unknown]
  - Carbohydrate antigen 125 increased [Recovered/Resolved]
  - Decreased activity [Not Recovered/Not Resolved]
  - Blood pressure decreased [Not Recovered/Not Resolved]
  - Heart rate increased [Not Recovered/Not Resolved]
  - Weight increased [Unknown]
  - Nasopharyngitis [Unknown]
  - Faeces discoloured [Not Recovered/Not Resolved]
  - Fluid intake reduced [Not Recovered/Not Resolved]
  - Faeces hard [Not Recovered/Not Resolved]
  - Dyskinesia [Unknown]
  - Off label use [Unknown]
  - Inappropriate schedule of product administration [Unknown]
  - Product use complaint [Unknown]

NARRATIVE: CASE EVENT DATE: 20211123
